FAERS Safety Report 25762323 (Version 1)
Quarter: 2025Q3

REPORT INFORMATION
  Report Type: Spontaneous
  Country: US (occurrence: None)
  Receive Date: 20250903
  Receipt Date: 20250903
  Transmission Date: 20251020
  Serious: Yes (Other)
  Sender: FDA-CTU
  Company Number: None

PATIENT
  Age: 25 Year
  Sex: Female

DRUGS (1)
  1. BOTOX [Suspect]
     Active Substance: ONABOTULINUMTOXINA
     Indication: Migraine
     Route: 030
     Dates: start: 20241201

REACTIONS (4)
  - Skin burning sensation [None]
  - Facial pain [None]
  - Post procedural complication [None]
  - Dysgeusia [None]

NARRATIVE: CASE EVENT DATE: 20250610
